FAERS Safety Report 22353065 (Version 3)
Quarter: 2024Q1

REPORT INFORMATION
  Report Type: Report from Study
  Country: IT (occurrence: IT)
  Receive Date: 20230523
  Receipt Date: 20240301
  Transmission Date: 20240410
  Serious: Yes (Hospitalization)
  Sender: FDA-Public Use
  Company Number: None

PATIENT
  Age: 15 Year
  Sex: Male
  Weight: 50 kg

DRUGS (8)
  1. METHOTREXATE (METHOTREXATE SODIUM) [Suspect]
     Active Substance: METHOTREXATE SODIUM
     Indication: Product used for unknown indication
     Dosage: DOSAGE TEXT: 12 MG IT
     Route: 037
     Dates: start: 20230412
  2. METHOTREXATE (METHOTREXATE SODIUM) [Suspect]
     Active Substance: METHOTREXATE SODIUM
     Indication: Product used for unknown indication
     Dosage: DOSAGE TEXT:1500 MG OF WHICH 150 MG ADMINISTERED IV OVER 30^, 1350 MG IV OVER 2130^, INJECTION/IN...
     Route: 042
     Dates: start: 20230412, end: 20230414
  3. ONCASPAR [Suspect]
     Active Substance: PEGASPARGASE
     Indication: Acute lymphocytic leukaemia recurrent
     Dosage: DOSAGE TEXT: SINGLE ADMINISTRATION 1500UI, INJECTION/INFUSION
     Route: 042
     Dates: start: 20230418, end: 20230418
  4. CYCLOPHOSPHAMIDE [Suspect]
     Active Substance: CYCLOPHOSPHAMIDE
     Indication: Product used for unknown indication
     Dosage: DOSAGE TEXT: 5 DOSES, INJECTION/INFUSION
     Route: 042
     Dates: start: 20230414, end: 20230416
  5. VINCRISTINE [Suspect]
     Active Substance: VINCRISTINE
     Indication: Product used for unknown indication
     Dosage: DOSAGE TEXT: TWO ADMINISTRATIONS OF 2 MG IV IN PUSH THE FIRST ON 12/04 THE SECOND ON 18/04/2023, ...
     Route: 042
     Dates: start: 20230412, end: 20230418
  6. METHYLPREDNISOLONE [Suspect]
     Active Substance: METHYLPREDNISOLONE
     Indication: Product used for unknown indication
     Dosage: DOSAGE TEXT: 10 MG IT
     Route: 037
     Dates: start: 20230412
  7. CYTARABINE [Suspect]
     Active Substance: CYTARABINE
     Indication: Acute lymphocytic leukaemia recurrent
     Dosage: 2 DOSI DA 3000 MG 1 OGNI 12H, INJECTION/INFUSION
     Route: 042
     Dates: start: 20230417, end: 20230417
  8. CYTARABINE [Suspect]
     Active Substance: CYTARABINE
     Indication: Product used for unknown indication
     Dosage: DOSAGE TEXT: 30MG IT, INJECTION/INFUSION
     Route: 037
     Dates: start: 20230412

REACTIONS (1)
  - Febrile bone marrow aplasia [Not Recovered/Not Resolved]

NARRATIVE: CASE EVENT DATE: 20230421
